FAERS Safety Report 25610004 (Version 1)
Quarter: 2025Q3

REPORT INFORMATION
  Report Type: Spontaneous
  Country: US (occurrence: US)
  Receive Date: 20250728
  Receipt Date: 20250728
  Transmission Date: 20251021
  Serious: No
  Sender: ROCHE
  Company Number: US-ROCHE-10000343603

PATIENT
  Sex: Female

DRUGS (3)
  1. XOLAIR PFS [Suspect]
     Active Substance: OMALIZUMAB
     Indication: Asthma
     Dosage: STRENGTH: 75MG/0.5 ML
     Route: 058
     Dates: start: 202502
  2. XOLAIR PFS [Suspect]
     Active Substance: OMALIZUMAB
     Dosage: STRENGTH: 300MG/2ML
     Route: 058
     Dates: start: 202502
  3. ALBUTEROL SULFATE [Concomitant]
     Active Substance: ALBUTEROL SULFATE

REACTIONS (4)
  - Dyspnoea [Unknown]
  - Chest discomfort [Unknown]
  - Secretion discharge [Unknown]
  - Hypersensitivity [Unknown]
